FAERS Safety Report 16760887 (Version 1)
Quarter: 2019Q3

REPORT INFORMATION
  Report Type: Report from Study
  Country: GB (occurrence: GB)
  Receive Date: 20190830
  Receipt Date: 20190830
  Transmission Date: 20191005
  Serious: Yes (Other)
  Sender: FDA-Public Use
  Company Number: GB-JNJFOC-20190826031

PATIENT

DRUGS (1)
  1. IBRUTINIB [Suspect]
     Active Substance: IBRUTINIB
     Indication: MANTLE CELL LYMPHOMA
     Route: 065

REACTIONS (6)
  - Cytopenia [Unknown]
  - Infection [Unknown]
  - Tachycardia [Unknown]
  - Toxicity to various agents [Unknown]
  - Drug tolerance decreased [Unknown]
  - Hepatitis [Unknown]
